FAERS Safety Report 4388734-9 (Version None)
Quarter: 2004Q2

REPORT INFORMATION
  Report Type: 
  Country: None (occurrence: None)
  Receive Date: 20040624
  Receipt Date: 20040608
  Transmission Date: 20050107
  Serious: Yes (Hospitalization)
  Sender: FDA-Public Use
  Company Number: 192805

PATIENT
  Age: 59 Year
  Sex: Female

DRUGS (9)
  1. AVONEX [Suspect]
     Indication: MULTIPLE SCLEROSIS
     Dosage: 30 MCG QW IM
     Route: 030
     Dates: start: 20030509
  2. PROTONIX [Concomitant]
  3. ELAVIL [Concomitant]
  4. PREMARIN [Concomitant]
  5. LESCOL [Concomitant]
  6. PROPRANOLOL [Concomitant]
  7. NEURONTIN [Concomitant]
  8. ZANAFLEX [Concomitant]
  9. HYDROCHLOROTHIAZIDE [Concomitant]

REACTIONS (1)
  - PNEUMONIA [None]
